FAERS Safety Report 9476516 (Version 1)
Quarter: 2013Q3

REPORT INFORMATION
  Report Type: Spontaneous
  Country: US (occurrence: None)
  Receive Date: 20130823
  Receipt Date: 20130823
  Transmission Date: 20140515
  Serious: Yes (Other)
  Sender: FDA-Public Use
  Company Number: None

PATIENT
  Age: 68 Year
  Sex: Female
  Weight: 72.58 kg

DRUGS (2)
  1. HUMIRA 40 MG ABBVIE [Suspect]
     Indication: RHEUMATOID ARTHRITIS
     Route: 058
     Dates: start: 2008, end: 2010
  2. REMICADE [Suspect]
     Indication: RHEUMATOID ARTHRITIS
     Dosage: Q5WEEKS IV
     Route: 042
     Dates: start: 2010, end: 20130719

REACTIONS (1)
  - Skin cancer [None]
